FAERS Safety Report 16058242 (Version 2)
Quarter: 2019Q2

REPORT INFORMATION
  Report Type: Report from Study
  Country: US (occurrence: US)
  Receive Date: 20190311
  Receipt Date: 20190411
  Transmission Date: 20190711
  Serious: No
  Sender: FDA-Public Use
  Company Number: PHEH2019US009777

PATIENT
  Weight: 25 kg

DRUGS (1)
  1. ILARIS [Suspect]
     Active Substance: CANAKINUMAB
     Indication: FAMILIAL MEDITERRANEAN FEVER
     Dosage: 50 MG, QMO
     Route: 058

REACTIONS (3)
  - Rhinorrhoea [Unknown]
  - Headache [Unknown]
  - Nasal congestion [Unknown]
